FAERS Safety Report 18042767 (Version 1)
Quarter: 2020Q3

REPORT INFORMATION
  Report Type: Spontaneous
  Country: CA (occurrence: CA)
  Receive Date: 20200720
  Receipt Date: 20200720
  Transmission Date: 20201103
  Serious: Yes (Hospitalization)
  Sender: FDA-Public Use
  Company Number: NVSC2020CA201851

PATIENT
  Age: 29 Year
  Sex: Female
  Weight: 56 kg

DRUGS (4)
  1. SANDOZ BUPROPION SR [Suspect]
     Active Substance: BUPROPION
     Indication: DEPRESSION
     Dosage: 150 MG, QD
     Route: 065
  2. VENLAFAXINE [Suspect]
     Active Substance: VENLAFAXINE HYDROCHLORIDE
     Indication: DEPRESSION
     Dosage: 150 MG, QD
     Route: 048
  3. CLONAZEPAM. [Concomitant]
     Active Substance: CLONAZEPAM
     Indication: PRODUCT USED FOR UNKNOWN INDICATION
     Dosage: UNK
     Route: 065
  4. SANDOZ BUPROPION SR [Suspect]
     Active Substance: BUPROPION
     Dosage: 100 MG, QD
     Route: 048

REACTIONS (4)
  - Hyperthermia [Recovered/Resolved]
  - Seizure [Recovered/Resolved]
  - Confusional state [Recovered/Resolved]
  - Serotonin syndrome [Recovered/Resolved]
